FAERS Safety Report 16398663 (Version 2)
Quarter: 2019Q3

REPORT INFORMATION
  Report Type: Spontaneous
  Country: US (occurrence: US)
  Receive Date: 20190606
  Receipt Date: 20190724
  Transmission Date: 20191004
  Serious: No
  Sender: FDA-Public Use
  Company Number: US-PFIZER INC-2019236437

PATIENT
  Sex: Female

DRUGS (1)
  1. LYRICA [Suspect]
     Active Substance: PREGABALIN
     Dosage: 400 MG, UNK

REACTIONS (4)
  - Withdrawal syndrome [Unknown]
  - Mobility decreased [Unknown]
  - Feeling abnormal [Unknown]
  - Crying [Unknown]
